FAERS Safety Report 6146239-9 (Version None)
Quarter: 2009Q2

REPORT INFORMATION
  Report Type: 
  Country: None (occurrence: None)
  Receive Date: 20090403
  Receipt Date: 20090323
  Transmission Date: 20091009
  Serious: Yes (Other)
  Sender: FDA-Public Use
  Company Number: PAR_02896_2009

PATIENT
  Sex: Male
  Weight: 127.0072 kg

DRUGS (4)
  1. CHOLESTYRAMINE [Suspect]
     Indication: BLOOD CHOLESTEROL INCREASED
     Dosage: 2 DF BID, AT LUNCH AND SUPPER, ORAL
     Route: 048
     Dates: start: 20070101
  2. QUESTRAN [Suspect]
     Indication: BLOOD CHOLESTEROL INCREASED
     Dosage: DF ORAL
     Route: 048
     Dates: start: 19750101
  3. METOPROLOL IMMEDIATE RELEASE [Concomitant]
  4. ASPIRIN [Concomitant]

REACTIONS (3)
  - MUSCULAR WEAKNESS [None]
  - NEUROPATHY PERIPHERAL [None]
  - PRODUCT QUALITY ISSUE [None]
